FAERS Safety Report 9882064 (Version 2)
Quarter: 2014Q2

REPORT INFORMATION
  Report Type: Spontaneous
  Country: US (occurrence: None)
  Receive Date: 20140205
  Receipt Date: 20140408
  Transmission Date: 20141212
  Serious: Yes (Hospitalization, Other)
  Sender: FDA-Public Use
  Company Number: OPCR20140046

PATIENT
  Age: 39 Year
  Sex: Female

DRUGS (1)
  1. OPANA ER [Suspect]
     Indication: DRUG ABUSE
     Route: 042

REACTIONS (11)
  - Microangiopathic haemolytic anaemia [None]
  - Drug abuse [None]
  - Incorrect route of drug administration [None]
  - Hepatitis C [None]
  - Systemic candida [None]
  - Cellulitis [None]
  - Thrombophlebitis [None]
  - Platelet count decreased [None]
  - Thrombotic thrombocytopenic purpura [None]
  - Oedema peripheral [None]
  - Pain [None]
